FAERS Safety Report 7661675-7 (Version None)
Quarter: 2011Q3

REPORT INFORMATION
  Report Type: 
  Country: None (occurrence: None)
  Receive Date: 20110805
  Receipt Date: 20101118
  Transmission Date: 20111222
  Serious: No
  Sender: FDA-Public Use
  Company Number: US-ABBOTT-10P-163-0686361-00

PATIENT
  Sex: Female
  Weight: 67.192 kg

DRUGS (14)
  1. NIASPAN [Suspect]
     Indication: C-REACTIVE PROTEIN INCREASED
     Dosage: 500 IN AM 1000 IN PM
  2. VIT D [Concomitant]
     Indication: PRODUCT USED FOR UNKNOWN INDICATION
  3. GARLIC [Concomitant]
     Indication: PRODUCT USED FOR UNKNOWN INDICATION
  4. ASPIRIN [Concomitant]
     Indication: PRODUCT USED FOR UNKNOWN INDICATION
  5. CALCIUM MAGNESIUM [Concomitant]
     Indication: PRODUCT USED FOR UNKNOWN INDICATION
  6. CILIMARIN OTC [Concomitant]
     Indication: COLITIS
  7. FISH OIL [Concomitant]
     Indication: PRODUCT USED FOR UNKNOWN INDICATION
  8. CULTERAL OTC [Concomitant]
     Indication: COLITIS
  9. SUPERBIO-CURCIMN OTC [Concomitant]
     Indication: PRODUCT USED FOR UNKNOWN INDICATION
  10. ASACOL [Suspect]
     Indication: COLITIS ULCERATIVE
  11. HYDROCHLOROTHIAZIDE [Concomitant]
     Indication: PRODUCT USED FOR UNKNOWN INDICATION
  12. ANTI INFLAMMATORY [Concomitant]
     Indication: COLITIS
  13. LIPITOR [Concomitant]
     Indication: PRODUCT USED FOR UNKNOWN INDICATION
  14. M.V.I. [Concomitant]
     Indication: PRODUCT USED FOR UNKNOWN INDICATION

REACTIONS (2)
  - FLUSHING [None]
  - HEPATIC ENZYME INCREASED [None]
